FAERS Safety Report 10479049 (Version 1)
Quarter: 2014Q3

REPORT INFORMATION
  Report Type: Spontaneous
  Country: EG (occurrence: EG)
  Receive Date: 20140926
  Receipt Date: 20140926
  Transmission Date: 20150326
  Serious: Yes (Hospitalization)
  Sender: FDA-Public Use
  Company Number: PHHY2014EG120014

PATIENT
  Age: 52 Year
  Sex: Male

DRUGS (2)
  1. ONBREZ BREEZHALER [Suspect]
     Active Substance: INDACATEROL
     Dosage: 150 MG
  2. ZOFRAN [Interacting]
     Active Substance: ONDANSETRON HYDROCHLORIDE
     Indication: RENAL DISORDER
     Dosage: UKN

REACTIONS (2)
  - Cardiac arrest [Recovered/Resolved]
  - Drug interaction [Recovered/Resolved]
